FAERS Safety Report 18972383 (Version 1)
Quarter: 2021Q1

REPORT INFORMATION
  Report Type: Spontaneous
  Country: US (occurrence: US)
  Receive Date: 20210304
  Receipt Date: 20210304
  Transmission Date: 20210420
  Serious: Yes (Other)
  Sender: FDA-Public Use
  Company Number: None

PATIENT
  Age: 74 Year
  Sex: Female
  Weight: 42.75 kg

DRUGS (7)
  1. METFORMIN ER [Concomitant]
     Active Substance: METFORMIN HYDROCHLORIDE
  2. CALCIUM CITRATE + D [Concomitant]
     Active Substance: CALCIUM CITRATE\CHOLECALCIFEROL
  3. MULTIVITAMIN [Concomitant]
     Active Substance: VITAMINS
  4. PRESER VISION AREDS [Concomitant]
  5. SERTRALINE [Concomitant]
     Active Substance: SERTRALINE HYDROCHLORIDE
  6. VALACYCLOVIR [Concomitant]
     Active Substance: VALACYCLOVIR HYDROCHLORIDE
  7. PROLIA [Suspect]
     Active Substance: DENOSUMAB
     Indication: OSTEOPOROSIS
     Dosage: ?          OTHER FREQUENCY:2 TIMES/YEAR;?
     Route: 058
     Dates: start: 20170101

REACTIONS (1)
  - Osteonecrosis of jaw [None]

NARRATIVE: CASE EVENT DATE: 20210122
